FAERS Safety Report 23902312 (Version 1)
Quarter: 2024Q2

REPORT INFORMATION
  Report Type: Spontaneous
  Country: US (occurrence: None)
  Receive Date: 20240527
  Receipt Date: 20240527
  Transmission Date: 20240716
  Serious: No
  Sender: FDA-Public Use
  Company Number: US-ROCHE-3498712

PATIENT
  Sex: Female
  Weight: 62.652 kg

DRUGS (5)
  1. ACTEMRA [Suspect]
     Active Substance: TOCILIZUMAB
     Indication: Rheumatoid arthritis
     Dosage: STRENGTH: 162 MG/0.9 ML
     Route: 058
     Dates: start: 202210, end: 20231124
  2. ACTEMRA [Suspect]
     Active Substance: TOCILIZUMAB
  3. REPATHA [Suspect]
     Active Substance: EVOLOCUMAB
     Indication: Blood cholesterol
     Route: 058
     Dates: start: 202210, end: 20231124
  4. CLARITIN [Concomitant]
     Active Substance: LORATADINE
     Indication: Hypersensitivity
     Route: 048
  5. MONTELUKAST [Concomitant]
     Active Substance: MONTELUKAST SODIUM
     Indication: Hypersensitivity
     Route: 048

REACTIONS (8)
  - Sinusitis [Not Recovered/Not Resolved]
  - Blood potassium increased [Recovered/Resolved]
  - Wrong technique in product usage process [Unknown]
  - Injection site pain [Unknown]
  - Device issue [Unknown]
  - Needle issue [Unknown]
  - Product complaint [Unknown]
  - Device malfunction [Unknown]

NARRATIVE: CASE EVENT DATE: 20231101
